FAERS Safety Report 22007327 (Version 1)
Quarter: 2023Q1

REPORT INFORMATION
  Report Type: Report from Study
  Country: US (occurrence: US)
  Receive Date: 20230218
  Receipt Date: 20230218
  Transmission Date: 20230417
  Serious: Yes (Death)
  Sender: FDA-Public Use
  Company Number: US-ABBVIE-4310797

PATIENT
  Sex: Male

DRUGS (1)
  1. VENCLEXTA [Suspect]
     Active Substance: VENETOCLAX
     Indication: Refractory cytopenia with multilineage dysplasia
     Dosage: TOOK 2 TABLETS BY MOUTH ONCE DAILY WITH FOOD AND A FULL GLASS OF WATER
     Route: 048

REACTIONS (1)
  - Death [Fatal]
